FAERS Safety Report 17305272 (Version 1)
Quarter: 2020Q1

REPORT INFORMATION
  Report Type: Other
  Country: IT (occurrence: IT)
  Receive Date: 20200123
  Receipt Date: 20200123
  Transmission Date: 20200409
  Serious: Yes (Hospitalization)
  Sender: FDA-Public Use
  Company Number: IT-MACLEODS PHARMACEUTICALS US LTD-MAC2020024828

PATIENT

DRUGS (1)
  1. LEVOFLOXACIN 500 MG [Suspect]
     Active Substance: LEVOFLOXACIN
     Indication: SKIN INFECTION
     Dosage: 500 MILLIGRAM, QD, COATED TABLET
     Route: 049
     Dates: start: 20191209, end: 20191227

REACTIONS (3)
  - Psychomotor hyperactivity [Unknown]
  - Confusional state [Unknown]
  - Delusion [Unknown]

NARRATIVE: CASE EVENT DATE: 20191227
